FAERS Safety Report 6318861-8 (Version None)
Quarter: 2009Q3

REPORT INFORMATION
  Report Type: 
  Country: None (occurrence: None)
  Receive Date: 20090821
  Receipt Date: 20090811
  Transmission Date: 20100115
  Serious: Yes (Hospitalization, Other)
  Sender: FDA-Public Use
  Company Number: US-ELI_LILLY_AND_COMPANY-US200907001530

PATIENT
  Sex: Female

DRUGS (18)
  1. CYMBALTA [Suspect]
     Indication: FIBROMYALGIA
     Dosage: 60 MG, DAILY (1/D)
     Dates: start: 20080101
  2. GABAPENTIN [Concomitant]
     Dosage: 300 MG, 3/D
  3. FLUOXETINE [Concomitant]
     Dosage: 10 MG, UNK
  4. FLUOXETINE [Concomitant]
     Dosage: 20 MG, DAILY (1/D)
  5. RISPERDAL [Concomitant]
     Dosage: 0.5 MG, EACH EVENING
  6. CARBIDOPA-LEVODOPA [Concomitant]
     Indication: PARKINSON'S DISEASE
     Dosage: 1 D/F, 3/D
  7. ACTONEL [Concomitant]
     Dosage: 35 MG, WEEKLY (1/W)
  8. PREDNISONE [Concomitant]
     Dosage: 5 MG, DAILY (1/D)
  9. LORAZEPAM [Concomitant]
     Dosage: 1 MG, DAILY (1/D)
  10. HYDROCODONE [Concomitant]
  11. ADVAIR HFA [Concomitant]
  12. SINGULAIR [Concomitant]
     Dosage: 10 MG, UNK
  13. COMBIVENT [Concomitant]
  14. COMPAZINE                          /00013302/ [Concomitant]
     Indication: NAUSEA
     Dosage: 10 MG, DAILY (1/D)
  15. HIPREX [Concomitant]
     Dosage: 1 G, DAILY (1/D)
  16. MECLIZINE [Concomitant]
     Indication: DIZZINESS
     Dosage: 25 MG, 3/D
  17. OXYGEN [Concomitant]
     Route: 055
  18. FORTEO [Concomitant]
     Indication: OSTEOPOROSIS

REACTIONS (10)
  - ABASIA [None]
  - ASTHENIA [None]
  - BACK PAIN [None]
  - CONFUSIONAL STATE [None]
  - DECREASED APPETITE [None]
  - DEHYDRATION [None]
  - FALL [None]
  - HAND FRACTURE [None]
  - VERTEBROPLASTY [None]
  - WRIST FRACTURE [None]
